FAERS Safety Report 7467412-3 (Version None)
Quarter: 2011Q2

REPORT INFORMATION
  Report Type: 
  Country: None (occurrence: None)
  Receive Date: 20110509
  Receipt Date: 20110503
  Transmission Date: 20111010
  Serious: Yes (Life-Threatening)
  Sender: FDA-Public Use
  Company Number: FR-ASTRAZENECA-2011SE04827

PATIENT
  Age: 19002 Day
  Sex: Female

DRUGS (10)
  1. LOVENOX [Concomitant]
     Route: 058
  2. ROCURONIUM BROMIDE [Suspect]
     Indication: ANAESTHESIA
     Route: 042
     Dates: start: 20101208, end: 20101208
  3. DIPRIVAN [Suspect]
     Indication: ANAESTHESIA
     Dosage: ONCE/SINGLE ADMINISTRATION.
     Route: 042
     Dates: start: 20101207, end: 20101207
  4. DROPERIDOL [Concomitant]
     Route: 048
  5. ULTIVA [Suspect]
     Indication: ANAESTHESIA
     Dosage: ONCE/SINGLE ADMINISTRATION.
     Route: 042
     Dates: start: 20101207, end: 20101207
  6. XANAX [Concomitant]
     Route: 048
  7. LEVOTHYROXINE SODIUM [Concomitant]
     Route: 048
  8. DIPRIVAN [Suspect]
     Route: 042
     Dates: start: 20101208, end: 20101208
  9. ULTIVA [Suspect]
     Route: 042
     Dates: start: 20101208, end: 20101208
  10. ZOPHREN [Concomitant]
     Route: 065

REACTIONS (1)
  - ANAPHYLACTOID SHOCK [None]
